FAERS Safety Report 18985826 (Version 1)
Quarter: 2021Q1

REPORT INFORMATION
  Report Type: Spontaneous
  Country: CN (occurrence: CN)
  Receive Date: 20210309
  Receipt Date: 20210309
  Transmission Date: 20210420
  Serious: Yes (Other)
  Sender: FDA-Public Use
  Company Number: CN-ASTRAZENECA-2021A109771

PATIENT

DRUGS (2)
  1. BRILINTA [Suspect]
     Active Substance: TICAGRELOR
     Route: 048
  2. INDOBUFEN [Concomitant]
     Active Substance: INDOBUFEN

REACTIONS (2)
  - Gastrointestinal haemorrhage [Unknown]
  - Rhabdomyolysis [Unknown]
